FAERS Safety Report 24133516 (Version 1)
Quarter: 2024Q3

REPORT INFORMATION
  Report Type: Spontaneous
  Country: FR (occurrence: FR)
  Receive Date: 20240724
  Receipt Date: 20240724
  Transmission Date: 20241016
  Serious: Yes (Life-Threatening, Hospitalization)
  Sender: PFIZER
  Company Number: None

PATIENT
  Age: 68 Year
  Sex: Female
  Weight: 98 kg

DRUGS (1)
  1. CYTARABINE [Suspect]
     Active Substance: CYTARABINE
     Indication: Adult T-cell lymphoma/leukaemia
     Dosage: 8 G
     Dates: start: 20240705, end: 20240705

REACTIONS (2)
  - Hyperthermia [Not Recovered/Not Resolved]
  - Cerebellar ataxia [Not Recovered/Not Resolved]

NARRATIVE: CASE EVENT DATE: 20240705
